FAERS Safety Report 20966688 (Version 1)
Quarter: 2022Q2

REPORT INFORMATION
  Report Type: Other
  Country: GB (occurrence: GB)
  Receive Date: 20220616
  Receipt Date: 20220616
  Transmission Date: 20220721
  Serious: Yes (Other)
  Sender: FDA-Public Use
  Company Number: GB-SAMSUNG BIOEPIS-SB-2021-29492

PATIENT
  Age: 28 Year
  Sex: Male

DRUGS (5)
  1. PREDNISOLONE [Suspect]
     Active Substance: PREDNISOLONE
     Indication: Colitis ulcerative
     Dosage: UNK
     Route: 065
  2. IMRALDI [Suspect]
     Active Substance: ADALIMUMAB
     Indication: Colitis ulcerative
     Dosage: 40 MILLIGRAM, ONCE A WEEK
     Route: 058
  3. IMRALDI [Suspect]
     Active Substance: ADALIMUMAB
     Dosage: 160 MILLIGRAM, WEEK ZERO
     Route: 058
     Dates: start: 20211122
  4. IMRALDI [Suspect]
     Active Substance: ADALIMUMAB
     Dosage: 40 MILLIGRAM, 2 TIMES A WEEK
     Route: 058
  5. IMRALDI [Suspect]
     Active Substance: ADALIMUMAB
     Dosage: 80 MILLIGRAM, WEEK TWO
     Route: 058

REACTIONS (7)
  - Exercise tolerance decreased [Unknown]
  - Colitis ulcerative [Unknown]
  - Nausea [Unknown]
  - Hypoglycaemia [Unknown]
  - COVID-19 [Unknown]
  - Diabetes mellitus [Unknown]
  - Malaise [Unknown]
